FAERS Safety Report 18316282 (Version 2)
Quarter: 2020Q4

REPORT INFORMATION
  Report Type: Spontaneous
  Country: US (occurrence: US)
  Receive Date: 20200927
  Receipt Date: 20201124
  Transmission Date: 20210113
  Serious: No
  Sender: FDA-Public Use
  Company Number: US-ASTRAZENECA-2020SF23137

PATIENT
  Sex: Female

DRUGS (1)
  1. SYMBICORT [Suspect]
     Active Substance: BUDESONIDE\FORMOTEROL FUMARATE DIHYDRATE
     Indication: CHRONIC OBSTRUCTIVE PULMONARY DISEASE
     Dosage: 160MCG/4.5MCG, INHALATION, TWO PUFFS TWICE A DAY
     Route: 055
     Dates: start: 20200828

REACTIONS (4)
  - Incorrect dose administered by device [Unknown]
  - Device failure [Unknown]
  - Chest discomfort [Unknown]
  - Dyspnoea [Unknown]
